FAERS Safety Report 6834250-1 (Version None)
Quarter: 2010Q3

REPORT INFORMATION
  Report Type: 
  Country: None (occurrence: None)
  Receive Date: 20100712
  Receipt Date: 20070411
  Transmission Date: 20110219
  Serious: No
  Sender: FDA-Public Use
  Company Number: US-PFIZER INC-2007029687

PATIENT
  Sex: Female
  Weight: 65.77 kg

DRUGS (1)
  1. CHANTIX [Suspect]
     Indication: SMOKING CESSATION THERAPY
     Dates: start: 20070301

REACTIONS (5)
  - BLOOD GLUCOSE DECREASED [None]
  - HYPERPHAGIA [None]
  - MALAISE [None]
  - NAUSEA [None]
  - TREMOR [None]
